FAERS Safety Report 24166364 (Version 1)
Quarter: 2024Q3

REPORT INFORMATION
  Report Type: Spontaneous
  Country: PL (occurrence: PL)
  Receive Date: 20240802
  Receipt Date: 20240802
  Transmission Date: 20241017
  Serious: No
  Sender: ALKEM
  Company Number: PL-ALKEM LABORATORIES LIMITED-PL-ALKEM-2023-17179

PATIENT
  Age: 50 Year
  Sex: Male

DRUGS (8)
  1. LAMOTRIGINE [Suspect]
     Active Substance: LAMOTRIGINE
     Indication: Frontal lobe epilepsy
     Dosage: 100 MILLIGRAM, QD (DAILY)
     Route: 065
  2. LAMOTRIGINE [Suspect]
     Active Substance: LAMOTRIGINE
     Indication: Disability
  3. LAMOTRIGINE [Suspect]
     Active Substance: LAMOTRIGINE
     Indication: Anxiety
  4. LAMOTRIGINE [Suspect]
     Active Substance: LAMOTRIGINE
     Indication: Insomnia
  5. OXCARBAZEPINE [Concomitant]
     Active Substance: OXCARBAZEPINE
     Indication: Frontal lobe epilepsy
     Dosage: UNK
     Route: 065
  6. OXCARBAZEPINE [Concomitant]
     Active Substance: OXCARBAZEPINE
     Indication: Disability
  7. OXCARBAZEPINE [Concomitant]
     Active Substance: OXCARBAZEPINE
     Indication: Anxiety
  8. OXCARBAZEPINE [Concomitant]
     Active Substance: OXCARBAZEPINE
     Indication: Insomnia

REACTIONS (1)
  - Hypersexuality [Unknown]
